FAERS Safety Report 7592793-X (Version None)
Quarter: 2011Q3

REPORT INFORMATION
  Report Type: 
  Country: None (occurrence: None)
  Receive Date: 20110706
  Receipt Date: 20110630
  Transmission Date: 20111222
  Serious: No
  Sender: FDA-Public Use
  Company Number: US-PFIZER INC-2011147715

PATIENT
  Sex: Female

DRUGS (2)
  1. ZYVOX [Suspect]
     Indication: URINARY TRACT INFECTION
     Dosage: 600 MG, 2X/DAY
     Route: 048
     Dates: start: 20110630
  2. ZYVOX [Concomitant]
     Dosage: UNK
     Route: 042
     Dates: start: 20110628, end: 20110630

REACTIONS (2)
  - ERYTHEMA [None]
  - FEELING HOT [None]
